FAERS Safety Report 7718996-9 (Version None)
Quarter: 2011Q3

REPORT INFORMATION
  Report Type: 
  Country: None (occurrence: None)
  Receive Date: 20110830
  Receipt Date: 20110816
  Transmission Date: 20111222
  Serious: Yes (Hospitalization)
  Sender: FDA-Public Use
  Company Number: US-GLAXOSMITHKLINE-B0705670A

PATIENT
  Sex: Male
  Weight: 94.5 kg

DRUGS (6)
  1. GLIPIZIDE [Concomitant]
  2. SIMAVASTATIN [Concomitant]
  3. TRICOR [Concomitant]
  4. AVANDIA [Suspect]
     Indication: DIABETES MELLITUS
     Dosage: 4MG PER DAY
     Route: 048
     Dates: start: 20050101, end: 20100821
  5. LISINOPRIL [Concomitant]
  6. METFORMIN HYDROCHLORIDE [Concomitant]

REACTIONS (3)
  - CORONARY ARTERY DISEASE [None]
  - CEREBROVASCULAR ACCIDENT [None]
  - MYOCARDIAL INFARCTION [None]
